FAERS Safety Report 8275536-6 (Version None)
Quarter: 2012Q2

REPORT INFORMATION
  Report Type: 
  Country: None (occurrence: None)
  Receive Date: 20120412
  Receipt Date: 20120405
  Transmission Date: 20120825
  Serious: Yes (Other)
  Sender: FDA-Public Use
  Company Number: SK-AMGEN-SVKSP2012017613

PATIENT
  Sex: Female

DRUGS (1)
  1. PROLIA [Suspect]
     Indication: OSTEOPOROSIS

REACTIONS (5)
  - INJECTION SITE SWELLING [None]
  - ANKLE FRACTURE [None]
  - BACK PAIN [None]
  - PAIN IN EXTREMITY [None]
  - HAEMATURIA [None]
